FAERS Safety Report 12239094 (Version 2)
Quarter: 2017Q2

REPORT INFORMATION
  Report Type: Spontaneous
  Country: FR (occurrence: FR)
  Receive Date: 20160405
  Receipt Date: 20170419
  Transmission Date: 20170830
  Serious: Yes (Other)
  Sender: FDA-Public Use
  Company Number: PHHY2016FR043032

PATIENT
  Age: 61 Year
  Sex: Male

DRUGS (2)
  1. TASIGNA [Suspect]
     Active Substance: NILOTINIB
     Indication: CHRONIC MYELOID LEUKAEMIA
     Dosage: 400 MG, BID
     Route: 048
     Dates: start: 201106, end: 201408
  2. TASIGNA [Suspect]
     Active Substance: NILOTINIB
     Dosage: 300 MG, BID
     Route: 048
     Dates: start: 201411

REACTIONS (2)
  - Thrombosis [Unknown]
  - Renal artery stenosis [Recovered/Resolved]

NARRATIVE: CASE EVENT DATE: 201503
